FAERS Safety Report 25108538 (Version 1)
Quarter: 2025Q1

REPORT INFORMATION
  Report Type: Spontaneous
  Country: CN (occurrence: CN)
  Receive Date: 20250322
  Receipt Date: 20250322
  Transmission Date: 20250408
  Serious: Yes (Death, Other)
  Sender: AMGEN
  Company Number: CN-AMGEN-CHNSP2025053413

PATIENT

DRUGS (4)
  1. BLINATUMOMAB [Suspect]
     Active Substance: BLINATUMOMAB
     Indication: Acute lymphocytic leukaemia
     Route: 065
  2. BLINATUMOMAB [Suspect]
     Active Substance: BLINATUMOMAB
     Indication: Philadelphia chromosome positive
  3. OLVEREMBATINIB [Suspect]
     Active Substance: OLVEREMBATINIB
     Indication: Acute lymphocytic leukaemia
     Route: 065
  4. INOTUZUMAB OZOGAMICIN [Concomitant]
     Active Substance: INOTUZUMAB OZOGAMICIN
     Route: 065

REACTIONS (4)
  - Central nervous system leukaemia [Fatal]
  - Acute graft versus host disease [Unknown]
  - Chronic graft versus host disease [Unknown]
  - Acute lymphocytic leukaemia recurrent [Unknown]
